FAERS Safety Report 5232272-8 (Version None)
Quarter: 2007Q1

REPORT INFORMATION
  Report Type: 
  Country: None (occurrence: None)
  Receive Date: 20070207
  Receipt Date: 20070131
  Transmission Date: 20070707
  Serious: Yes (Other)
  Sender: FDA-Public Use
  Company Number: US-JNJFOC-20070200275

PATIENT
  Age: 46 Year
  Sex: Female
  Weight: 90.72 kg

DRUGS (6)
  1. TYLENOL (CAPLET) [Suspect]
     Route: 048
  2. TYLENOL (CAPLET) [Suspect]
     Indication: PAIN
     Route: 048
  3. SYNTHROID [Concomitant]
     Indication: THYROID DISORDER
  4. SINGULAIR [Concomitant]
     Indication: MULTIPLE ALLERGIES
  5. ZYRTEC [Concomitant]
     Indication: MULTIPLE ALLERGIES
  6. GLUCOVANCE [Concomitant]
     Indication: DIABETES MELLITUS

REACTIONS (2)
  - LIP SWELLING [None]
  - REACTION TO DRUG EXCIPIENTS [None]
